FAERS Safety Report 7150516-2 (Version None)
Quarter: 2010Q4

REPORT INFORMATION
  Report Type: 
  Country: None (occurrence: None)
  Receive Date: 20101124
  Receipt Date: 20101117
  Transmission Date: 20110411
  Serious: Yes (Hospitalization, Other)
  Sender: FDA-Public Use
  Company Number: 012813

PATIENT
  Sex: Female
  Weight: 75.7507 kg

DRUGS (3)
  1. LACOSAMIDE [Suspect]
     Indication: EPILEPSY
     Dosage: (200 MG BID, KIT NO: 31135 ORAL)
     Route: 048
     Dates: start: 20100421, end: 20100526
  2. TOPAMAX [Suspect]
     Dosage: (50 MG TID)
  3. DILANTIN [Concomitant]

REACTIONS (11)
  - ATAXIA [None]
  - BACTERIAL TEST POSITIVE [None]
  - CARDIOMEGALY [None]
  - CEREBELLAR ATROPHY [None]
  - CONFUSIONAL STATE [None]
  - DISORIENTATION [None]
  - ENCEPHALOPATHY [None]
  - INCOHERENT [None]
  - INCORRECT DOSE ADMINISTERED [None]
  - STATUS EPILEPTICUS [None]
  - URINARY SEDIMENT PRESENT [None]
